FAERS Safety Report 7029933-7 (Version None)
Quarter: 2010Q4

REPORT INFORMATION
  Report Type: 
  Country: None (occurrence: None)
  Receive Date: 20101006
  Receipt Date: 20100216
  Transmission Date: 20110411
  Serious: No
  Sender: FDA-Public Use
  Company Number: US-BAYER-201013656NA

PATIENT
  Age: 35 Year
  Sex: Female
  Weight: 74 kg

DRUGS (1)
  1. MIRENA [Suspect]
     Indication: CONTRACEPTION
     Route: 015
     Dates: start: 20090928, end: 20100203

REACTIONS (4)
  - ABDOMINAL PAIN [None]
  - AMENORRHOEA [None]
  - DEVICE EXPULSION [None]
  - VAGINAL HAEMORRHAGE [None]
